FAERS Safety Report 11580219 (Version 1)
Quarter: 2015Q3

REPORT INFORMATION
  Report Type: Spontaneous
  Country: US (occurrence: US)
  Receive Date: 20150916
  Receipt Date: 20150916
  Transmission Date: 20151125
  Serious: No
  Sender: FDA-Public Use
  Company Number: US-ELI_LILLY_AND_COMPANY-US200804005398

PATIENT
  Sex: Female

DRUGS (1)
  1. FORTEO [Suspect]
     Active Substance: TERIPARATIDE
     Dosage: UNK, MONTHLY (1/M)

REACTIONS (4)
  - Adverse event [Unknown]
  - Hot flush [Unknown]
  - Body temperature increased [Not Recovered/Not Resolved]
  - Chills [Unknown]
